FAERS Safety Report 16158717 (Version 1)
Quarter: 2019Q2

REPORT INFORMATION
  Report Type: Spontaneous
  Country: US (occurrence: US)
  Receive Date: 20190404
  Receipt Date: 20190404
  Transmission Date: 20190711
  Serious: Yes (Other)
  Sender: FDA-Public Use
  Company Number: US-TEVA-2019-US-1032522

PATIENT
  Age: 84 Year
  Sex: Female

DRUGS (3)
  1. ZIPRASIDONE. [Suspect]
     Active Substance: ZIPRASIDONE
     Indication: PSYCHOTIC DISORDER
     Dosage: 20 MILLIGRAM DAILY; THE MINIMUM DOSE OF ZIPRASIDONE WAS 20 MG/DAY AND MAXIMUM DOSE WAS 40 MG/DAY
     Route: 065
  2. QUETIAPINE. [Suspect]
     Active Substance: QUETIAPINE
     Indication: PSYCHOTIC DISORDER
     Route: 065
  3. ZIPRASIDONE. [Suspect]
     Active Substance: ZIPRASIDONE
     Indication: PSYCHOTIC DISORDER
     Dosage: 40 MILLIGRAM DAILY; THE MINIMUM DOSE OF ZIPRASIDONE WAS 20 MG/DAY AND MAXIMUM DOSE WAS 40 MG/DAY

REACTIONS (2)
  - Parkinsonism [Not Recovered/Not Resolved]
  - Drug ineffective [Unknown]
